FAERS Safety Report 6035588-0 (Version None)
Quarter: 2009Q1

REPORT INFORMATION
  Report Type: 
  Country: None (occurrence: None)
  Receive Date: 20090113
  Receipt Date: 20090106
  Transmission Date: 20090719
  Serious: Yes (Other)
  Sender: FDA-Public Use
  Company Number: NL-BAYER-200910763GPV

PATIENT
  Age: 74 Year
  Sex: Male

DRUGS (2)
  1. NEXAVAR [Suspect]
     Indication: HEPATIC NEOPLASM MALIGNANT
     Dosage: TOTAL DAILY DOSE: 800 MG
     Route: 048
     Dates: start: 20081115, end: 20090101
  2. SPIRONOLACTION [Concomitant]
     Indication: DIURETIC THERAPY
     Route: 048

REACTIONS (2)
  - DIARRHOEA [None]
  - PERONEAL NERVE PALSY [None]
